FAERS Safety Report 15606526 (Version 2)
Quarter: 2019Q1

REPORT INFORMATION
  Report Type: Report from Study
  Country: JP (occurrence: JP)
  Receive Date: 20181112
  Receipt Date: 20190201
  Transmission Date: 20190417
  Serious: Yes (Other)
  Sender: FDA-Public Use
  Company Number: JP-ACTELION-A-CH2018-181555

PATIENT
  Age: 75 Year
  Sex: Female

DRUGS (5)
  1. OPSUMIT [Suspect]
     Active Substance: MACITENTAN
     Dosage: 5 MG, QD
     Route: 048
     Dates: start: 20160615, end: 20160809
  2. URSO [Concomitant]
     Active Substance: URSODIOL
  3. OXYGEN. [Concomitant]
     Active Substance: OXYGEN
  4. OPSUMIT [Suspect]
     Active Substance: MACITENTAN
     Indication: PULMONARY ARTERIAL HYPERTENSION
     Dosage: 10 MG, QD
     Route: 048
     Dates: start: 20160810, end: 20170117
  5. DIART [Concomitant]
     Active Substance: AZOSEMIDE

REACTIONS (2)
  - Concomitant disease aggravated [Recovering/Resolving]
  - Primary biliary cholangitis [Recovering/Resolving]

NARRATIVE: CASE EVENT DATE: 20170117
